FAERS Safety Report 18156918 (Version 1)
Quarter: 2020Q3

REPORT INFORMATION
  Report Type: Spontaneous
  Country: US (occurrence: US)
  Receive Date: 20200815
  Receipt Date: 20200815
  Transmission Date: 20201103
  Serious: Yes (Hospitalization)
  Sender: FDA-Public Use
  Company Number: None

PATIENT
  Age: 45 Year
  Sex: Female
  Weight: 89.8 kg

DRUGS (3)
  1. DEXAMETHASONE. [Suspect]
     Active Substance: DEXAMETHASONE
     Dates: end: 20180417
  2. LENALIDOMIDE (CC?5013) [Suspect]
     Active Substance: LENALIDOMIDE
     Dates: end: 20180419
  3. VELCADE [Suspect]
     Active Substance: BORTEZOMIB
     Dates: end: 20180416

REACTIONS (2)
  - Therapy interrupted [None]
  - Neutrophil count decreased [None]

NARRATIVE: CASE EVENT DATE: 20180420
